FAERS Safety Report 12092671 (Version 2)
Quarter: 2017Q3

REPORT INFORMATION
  Report Type: Spontaneous
  Country: US (occurrence: US)
  Receive Date: 20160219
  Receipt Date: 20170922
  Transmission Date: 20171127
  Serious: Yes (Death, Hospitalization)
  Sender: FDA-Public Use
  Company Number: US-SUN PHARMACEUTICAL INDUSTRIES LTD-2016US-111766

PATIENT
  Age: 2 Year
  Sex: Female

DRUGS (1)
  1. PREDNISONE. [Suspect]
     Active Substance: PREDNISONE
     Indication: EVANS SYNDROME
     Dosage: 2 MG/KG, DAILY (DIVIDED TWICE A DAY)
     Route: 065

REACTIONS (7)
  - Shock [Unknown]
  - Viral myocarditis [Fatal]
  - Thrombocytopenia [Unknown]
  - Hypotension [Unknown]
  - Human herpesvirus 6 infection [Fatal]
  - Urine output decreased [Unknown]
  - Mental status changes [Unknown]
